FAERS Safety Report 11615758 (Version 5)
Quarter: 2016Q3

REPORT INFORMATION
  Report Type: Report from Study
  Country: TH (occurrence: TH)
  Receive Date: 20151009
  Receipt Date: 20160705
  Transmission Date: 20161109
  Serious: Yes (Hospitalization, Other)
  Sender: FDA-Public Use
  Company Number: TH-BAYER-2015-367544

PATIENT
  Age: 71 Year
  Sex: Male
  Weight: 53 kg

DRUGS (52)
  1. REFAMETINIB [Suspect]
     Active Substance: REFAMETINIB
     Indication: HEPATOCELLULAR CARCINOMA
     Dosage: 30 MG, BID
     Route: 048
     Dates: start: 20160216, end: 20160307
  2. REFAMETINIB [Suspect]
     Active Substance: REFAMETINIB
     Indication: HEPATOCELLULAR CARCINOMA
     Dosage: 20 MG, BID
     Route: 048
     Dates: start: 20160308
  3. SORAFENIB (RAF KINASE INHIBITOR) [Suspect]
     Active Substance: SORAFENIB
     Indication: HEPATOCELLULAR CARCINOMA
     Dosage: 600 MG DAILY
     Route: 048
     Dates: start: 20150811, end: 20150831
  4. SORAFENIB (RAF KINASE INHIBITOR) [Suspect]
     Active Substance: SORAFENIB
     Indication: HEPATOCELLULAR CARCINOMA
     Dosage: 200 MG, BID
     Route: 048
     Dates: start: 20150915, end: 20150921
  5. CONCOR [Concomitant]
     Active Substance: BISOPROLOL FUMARATE
     Indication: HYPERTENSION
     Dosage: 2 DF, QD
     Route: 048
     Dates: start: 20150506, end: 20150609
  6. CONCOR [Concomitant]
     Active Substance: BISOPROLOL FUMARATE
     Indication: HYPERTENSION
     Dosage: 5 MG, QD
     Route: 048
     Dates: start: 20150610, end: 20150630
  7. TRIAMCINOLON [Concomitant]
     Indication: ECZEMA
     Dosage: APPLY PRN
     Route: 061
     Dates: start: 20150721
  8. REFAMETINIB [Suspect]
     Active Substance: REFAMETINIB
     Indication: HEPATOCELLULAR CARCINOMA
     Dosage: 50 MG, BID
     Route: 048
     Dates: start: 20150519, end: 20150608
  9. REFAMETINIB [Suspect]
     Active Substance: REFAMETINIB
     Indication: HEPATOCELLULAR CARCINOMA
     Dosage: 50 MG, BID
     Route: 048
     Dates: start: 20151103, end: 20151123
  10. SORAFENIB (RAF KINASE INHIBITOR) [Suspect]
     Active Substance: SORAFENIB
     Indication: HEPATOCELLULAR CARCINOMA
     Dosage: TOTAL DAILY DOSE 600 MG
     Route: 048
     Dates: start: 20150428, end: 20150518
  11. SORAFENIB (RAF KINASE INHIBITOR) [Suspect]
     Active Substance: SORAFENIB
     Indication: HEPATOCELLULAR CARCINOMA
     Dosage: 400 MG, QD
     Route: 048
     Dates: start: 20160329, end: 20160411
  12. CONCOR [Concomitant]
     Active Substance: BISOPROLOL FUMARATE
     Indication: HYPERTENSION
     Dosage: 0.5 DF, QD
     Route: 048
     Dates: start: 2012, end: 20150505
  13. DIOVAN [Concomitant]
     Active Substance: VALSARTAN
     Indication: HYPERTENSION
     Dosage: 0.5 DF, QD
     Route: 048
     Dates: start: 2012, end: 20150505
  14. REFAMETINIB [Suspect]
     Active Substance: REFAMETINIB
     Indication: HEPATOCELLULAR CARCINOMA
     Dosage: 50 MG, BID
     Route: 048
     Dates: start: 20150624, end: 20150706
  15. REFAMETINIB [Suspect]
     Active Substance: REFAMETINIB
     Indication: HEPATOCELLULAR CARCINOMA
     Dosage: 50 MG, BID
     Route: 048
     Dates: start: 20150720, end: 20150810
  16. REFAMETINIB [Suspect]
     Active Substance: REFAMETINIB
     Indication: HEPATOCELLULAR CARCINOMA
     Dosage: 30 MG, BID
     Route: 048
     Dates: start: 20160308
  17. SORAFENIB (RAF KINASE INHIBITOR) [Suspect]
     Active Substance: SORAFENIB
     Indication: HEPATOCELLULAR CARCINOMA
     Dosage: 200 MG, BID
     Route: 048
     Dates: start: 20150922, end: 20151012
  18. SORAFENIB (RAF KINASE INHIBITOR) [Suspect]
     Active Substance: SORAFENIB
     Indication: HEPATOCELLULAR CARCINOMA
     Dosage: 400 MG, QD
     Route: 048
     Dates: start: 20151013, end: 20151102
  19. SORAFENIB (RAF KINASE INHIBITOR) [Suspect]
     Active Substance: SORAFENIB
     Indication: HEPATOCELLULAR CARCINOMA
     Dosage: 400 MG, QD
     Route: 048
     Dates: start: 20151124, end: 20151214
  20. SORAFENIB (RAF KINASE INHIBITOR) [Suspect]
     Active Substance: SORAFENIB
     Indication: HEPATOCELLULAR CARCINOMA
     Dosage: 400 MG, QD
     Route: 048
     Dates: start: 20160308
  21. CONCOR [Concomitant]
     Active Substance: BISOPROLOL FUMARATE
     Indication: HYPERTENSION
     Dosage: 5 MG, QD
     Route: 048
     Dates: start: 20150901
  22. CLINDAMYCIN [Concomitant]
     Active Substance: CLINDAMYCIN\CLINDAMYCIN PHOSPHATE
     Indication: RASH
     Dosage: APPLY AS DIRECTED
     Route: 061
     Dates: start: 20150519
  23. REFAMETINIB [Suspect]
     Active Substance: REFAMETINIB
     Indication: HEPATOCELLULAR CARCINOMA
     Dosage: 50 MG, BID
     Route: 048
     Dates: start: 20150428, end: 20150518
  24. REFAMETINIB [Suspect]
     Active Substance: REFAMETINIB
     Indication: HEPATOCELLULAR CARCINOMA
     Dosage: 50 MG, QD
     Route: 048
     Dates: start: 20150623, end: 20150623
  25. REFAMETINIB [Suspect]
     Active Substance: REFAMETINIB
     Indication: HEPATOCELLULAR CARCINOMA
     Dosage: 50 MG, BID
     Route: 048
     Dates: start: 20151124, end: 20151214
  26. SORAFENIB (RAF KINASE INHIBITOR) [Suspect]
     Active Substance: SORAFENIB
     Indication: HEPATOCELLULAR CARCINOMA
     Dosage: 400 MG, QD
     Route: 048
     Dates: start: 20151103, end: 20151123
  27. SORAFENIB (RAF KINASE INHIBITOR) [Suspect]
     Active Substance: SORAFENIB
     Indication: HEPATOCELLULAR CARCINOMA
     Dosage: 400 MG, QD
     Route: 048
     Dates: start: 20151215, end: 20160104
  28. TENOFOVIR [Concomitant]
     Active Substance: TENOFOVIR
     Indication: HEPATITIS B
     Dosage: 300 MG, QD
     Route: 048
     Dates: start: 20130114
  29. BETNOVATE N [Concomitant]
     Indication: RASH
     Dosage: APPLY AS DIRECTED
     Route: 061
     Dates: start: 20150519
  30. REFAMETINIB [Suspect]
     Active Substance: REFAMETINIB
     Indication: HEPATOCELLULAR CARCINOMA
     Dosage: 50 MG, BID
     Route: 048
     Dates: start: 20150609, end: 20150618
  31. REFAMETINIB [Suspect]
     Active Substance: REFAMETINIB
     Indication: HEPATOCELLULAR CARCINOMA
     Dosage: 50 MG, BID
     Route: 048
     Dates: start: 20150922, end: 20151012
  32. REFAMETINIB [Suspect]
     Active Substance: REFAMETINIB
     Indication: HEPATOCELLULAR CARCINOMA
     Dosage: 50 MG, BID
     Route: 048
     Dates: start: 20160105, end: 20160125
  33. REFAMETINIB [Suspect]
     Active Substance: REFAMETINIB
     Indication: HEPATOCELLULAR CARCINOMA
     Dosage: 20 MG, BID
     Route: 048
     Dates: start: 20160216, end: 20160307
  34. REFAMETINIB [Suspect]
     Active Substance: REFAMETINIB
     Indication: HEPATOCELLULAR CARCINOMA
     Dosage: 30 MG, BID
     Route: 048
     Dates: start: 20160329, end: 20160413
  35. SORAFENIB (RAF KINASE INHIBITOR) [Suspect]
     Active Substance: SORAFENIB
     Indication: HEPATOCELLULAR CARCINOMA
     Dosage: 400 MG, QD
     Route: 048
     Dates: start: 20150623, end: 20150623
  36. SORAFENIB (RAF KINASE INHIBITOR) [Suspect]
     Active Substance: SORAFENIB
     Indication: HEPATOCELLULAR CARCINOMA
     Dosage: 400 MG, QD
     Route: 048
     Dates: start: 20160105, end: 20160125
  37. DIOVAN [Concomitant]
     Active Substance: VALSARTAN
     Indication: HYPERTENSION
     Dosage: 160 MG, QD
     Route: 048
     Dates: start: 20151103
  38. REFAMETINIB [Suspect]
     Active Substance: REFAMETINIB
     Indication: HEPATOCELLULAR CARCINOMA
     Dosage: 50 MG, BID
     Route: 048
     Dates: start: 20150901, end: 20150921
  39. SORAFENIB (RAF KINASE INHIBITOR) [Suspect]
     Active Substance: SORAFENIB
     Indication: HEPATOCELLULAR CARCINOMA
     Dosage: 400 MG, BID
     Route: 048
     Dates: start: 20150609, end: 20150618
  40. SORAFENIB (RAF KINASE INHIBITOR) [Suspect]
     Active Substance: SORAFENIB
     Indication: HEPATOCELLULAR CARCINOMA
     Dosage: 600 MG DAILY
     Route: 048
     Dates: start: 20150720, end: 20150810
  41. SORAFENIB (RAF KINASE INHIBITOR) [Suspect]
     Active Substance: SORAFENIB
     Indication: HEPATOCELLULAR CARCINOMA
     Dosage: 400 MG, QD
     Route: 048
     Dates: start: 20160216, end: 20160307
  42. DIOVAN [Concomitant]
     Active Substance: VALSARTAN
     Indication: HYPERTENSION
     Dosage: 160 MG, QD
     Route: 048
     Dates: start: 20150506
  43. NYSTATIN. [Concomitant]
     Active Substance: NYSTATIN
     Indication: CANDIDA INFECTION
     Dosage: GARGLE 4 TIMES A DAY
     Dates: start: 20150519
  44. REFAMETINIB [Suspect]
     Active Substance: REFAMETINIB
     Indication: HEPATOCELLULAR CARCINOMA
     Dosage: 50 MG, BID
     Route: 048
     Dates: start: 20151013, end: 20151102
  45. REFAMETINIB [Suspect]
     Active Substance: REFAMETINIB
     Indication: HEPATOCELLULAR CARCINOMA
     Dosage: 50 MG, BID
     Route: 048
     Dates: start: 20151215, end: 20160104
  46. SORAFENIB (RAF KINASE INHIBITOR) [Suspect]
     Active Substance: SORAFENIB
     Indication: HEPATOCELLULAR CARCINOMA
     Dosage: 600 MG DAILY
     Route: 048
     Dates: start: 20150519, end: 20150608
  47. SORAFENIB (RAF KINASE INHIBITOR) [Suspect]
     Active Substance: SORAFENIB
     Indication: HEPATOCELLULAR CARCINOMA
     Dosage: 400 MG, QD
     Route: 048
     Dates: start: 20160126, end: 20160215
  48. REFAMETINIB [Suspect]
     Active Substance: REFAMETINIB
     Indication: HEPATOCELLULAR CARCINOMA
     Dosage: 50 MG, BID
     Route: 048
     Dates: start: 20150811, end: 20150831
  49. REFAMETINIB [Suspect]
     Active Substance: REFAMETINIB
     Indication: HEPATOCELLULAR CARCINOMA
     Dosage: 50 MG, BID
     Route: 048
     Dates: start: 20160126, end: 20160215
  50. REFAMETINIB [Suspect]
     Active Substance: REFAMETINIB
     Indication: HEPATOCELLULAR CARCINOMA
     Dosage: 20 MG, BID
     Route: 048
     Dates: start: 20160329, end: 20160413
  51. SORAFENIB (RAF KINASE INHIBITOR) [Suspect]
     Active Substance: SORAFENIB
     Indication: HEPATOCELLULAR CARCINOMA
     Dosage: 600 MG DAILY
     Route: 048
     Dates: start: 20150624, end: 20150706
  52. DIOVAN [Concomitant]
     Active Substance: VALSARTAN
     Indication: HYPERTENSION
     Dosage: 0.5 DF, QD
     Route: 048
     Dates: start: 201509

REACTIONS (9)
  - Blood creatine phosphokinase increased [Recovering/Resolving]
  - Blood creatine phosphokinase increased [Not Recovered/Not Resolved]
  - Blood creatine phosphokinase increased [Recovering/Resolving]
  - Diarrhoea [Recovering/Resolving]
  - Diarrhoea [Not Recovered/Not Resolved]
  - Diarrhoea [Recovering/Resolving]
  - Diarrhoea [Not Recovered/Not Resolved]
  - Blood creatine phosphokinase increased [Not Recovered/Not Resolved]
  - Blood creatine phosphokinase increased [Recovered/Resolved]

NARRATIVE: CASE EVENT DATE: 20150503
